FAERS Safety Report 9097715 (Version 4)
Quarter: 2013Q2

REPORT INFORMATION
  Report Type: Report from Study
  Country: ID (occurrence: ID)
  Receive Date: 20130212
  Receipt Date: 20130411
  Transmission Date: 20140414
  Serious: Yes (Hospitalization, Other)
  Sender: FDA-Public Use
  Company Number: ID-ROCHE-1189924

PATIENT
  Age: 19 Year
  Sex: Female
  Weight: 29 kg

DRUGS (6)
  1. TOCILIZUMAB [Suspect]
     Indication: RHEUMATOID ARTHRITIS
     Route: 041
     Dates: start: 20121128
  2. LEFLUNOMIDE [Concomitant]
     Indication: RHEUMATOID ARTHRITIS
     Route: 048
  3. RISEDRONATE [Concomitant]
     Indication: OSTEOPOROSIS
     Route: 048
  4. CHOLECALCIFEROL [Concomitant]
     Indication: OSTEOARTHRITIS
     Route: 048
  5. PARACETAMOL [Concomitant]
     Route: 042
  6. CEFOTAXIM [Concomitant]
     Route: 042

REACTIONS (5)
  - Back pain [Not Recovered/Not Resolved]
  - Peripheral artery thrombosis [Recovering/Resolving]
  - Syncope [Unknown]
  - Dry gangrene [Recovered/Resolved]
  - Gastrointestinal disorder [Recovered/Resolved]
